FAERS Safety Report 12667319 (Version 1)
Quarter: 2016Q3

REPORT INFORMATION
  Report Type: Spontaneous
  Country: US (occurrence: None)
  Receive Date: 20160818
  Receipt Date: 20160818
  Transmission Date: 20161109
  Serious: Yes (Hospitalization)
  Sender: FDA-Public Use
  Company Number: None

PATIENT
  Age: 68 Year
  Sex: Female
  Weight: 89 kg

DRUGS (1)
  1. NUVIGIL [Suspect]
     Active Substance: ARMODAFINIL
     Dates: end: 20160814

REACTIONS (3)
  - Disorientation [None]
  - Encephalopathy [None]
  - Confusional state [None]

NARRATIVE: CASE EVENT DATE: 20160815
